FAERS Safety Report 9084728 (Version 1)
Quarter: 2013Q1

REPORT INFORMATION
  Report Type: Report from Study
  Country: US (occurrence: US)
  Receive Date: 20130131
  Receipt Date: 20130131
  Transmission Date: 20140127
  Serious: No
  Sender: FDA-Public Use
  Company Number: US-ABBOTT-12P-163-1003922-00

PATIENT
  Sex: Male
  Weight: 83.08 kg

DRUGS (7)
  1. HUMIRA [Suspect]
     Indication: ANKYLOSING SPONDYLITIS
     Route: 058
     Dates: start: 201006, end: 201210
  2. ASACOL [Concomitant]
     Indication: ANKYLOSING SPONDYLITIS
  3. ATTENOLOL [Concomitant]
     Indication: HYPERTENSION
  4. LUNESTA [Concomitant]
     Indication: INSOMNIA
  5. OXYCODONE [Concomitant]
     Indication: ANKYLOSING SPONDYLITIS
  6. PAXIL [Concomitant]
     Indication: DEPRESSION
  7. PERCOCET [Concomitant]
     Indication: ANKYLOSING SPONDYLITIS

REACTIONS (1)
  - Drug ineffective [Unknown]
